FAERS Safety Report 17156902 (Version 1)
Quarter: 2019Q4

REPORT INFORMATION
  Report Type: Spontaneous
  Country: NL (occurrence: NL)
  Receive Date: 20191216
  Receipt Date: 20191216
  Transmission Date: 20200122
  Serious: Yes (Death, Hospitalization)
  Sender: FDA-Public Use
  Company Number: NL-TEVA-2019-NL-1151967

PATIENT
  Sex: Male
  Weight: 2 kg

DRUGS (16)
  1. FLUOROURACIL. [Suspect]
     Active Substance: FLUOROURACIL
     Indication: GASTRIC CANCER STAGE IV
     Dosage: 2400 MG/M2
  2. AMITRYPTILINE [Concomitant]
     Active Substance: AMITRIPTYLINE
  3. TEMAZEPAM. [Concomitant]
     Active Substance: TEMAZEPAM
  4. CEFAZOLINE [Concomitant]
     Active Substance: CEFAZOLIN SODIUM
  5. MORFINE [Concomitant]
     Active Substance: MORPHINE
  6. PREGABALINE [Concomitant]
     Active Substance: PREGABALIN
  7. SMOFKABIVEN (TPV) [Concomitant]
  8. THIAMINE. [Concomitant]
     Active Substance: THIAMINE
  9. LIDOCAINE. [Concomitant]
     Active Substance: LIDOCAINE
  10. METOCLOPERAMIDE [Concomitant]
  11. OXALIPLATINE [Suspect]
     Active Substance: OXALIPLATIN
     Indication: GASTRIC CANCER STAGE IV
     Dosage: 85 MG/M3
  12. NADROPARINE [Concomitant]
     Active Substance: NADROPARIN
  13. FENTANYL. [Concomitant]
     Active Substance: FENTANYL
  14. ONDANSETRON [Concomitant]
     Active Substance: ONDANSETRON
  15. NUTRISON (SONDEVOEDING) [Concomitant]
  16. DEXAMETHASON [Concomitant]
     Active Substance: DEXAMETHASONE

REACTIONS (2)
  - Maternal exposure during pregnancy [Unknown]
  - Cerebral haemorrhage neonatal [Fatal]
